FAERS Safety Report 7490161-2 (Version None)
Quarter: 2011Q2

REPORT INFORMATION
  Report Type: 
  Country: None (occurrence: None)
  Receive Date: 20110519
  Receipt Date: 20110422
  Transmission Date: 20111010
  Serious: Yes (Other)
  Sender: FDA-Public Use
  Company Number: US-BAYER-201040122NA

PATIENT
  Age: 15 Year
  Sex: Female
  Weight: 50.794 kg

DRUGS (8)
  1. NASONEX [Concomitant]
     Indication: ASTHMA
     Dosage: UNK
     Dates: start: 20060901
  2. SINGULAIR [Concomitant]
     Indication: ASTHMA
     Dosage: UNK
     Dates: start: 20060901
  3. PREVACID [Concomitant]
  4. ROBINUL [Concomitant]
  5. YAZ [Suspect]
     Indication: PRODUCT USED FOR UNKNOWN INDICATION
     Route: 048
     Dates: start: 20081101, end: 20091001
  6. XOPENEX [Concomitant]
     Indication: ASTHMA
     Dosage: UNK
     Dates: start: 20060901
  7. ADVAIR DISKUS 100/50 [Concomitant]
     Indication: ASTHMA
     Dosage: UNK
     Dates: start: 20060901
  8. IBUPROFEN [Concomitant]
     Dosage: UNK
     Dates: start: 20050601

REACTIONS (6)
  - CHOLECYSTITIS [None]
  - PROCEDURAL PAIN [None]
  - GALLBLADDER DISORDER [None]
  - WEIGHT DECREASED [None]
  - GASTRIC DISORDER [None]
  - VOMITING [None]
